FAERS Safety Report 6068295-9 (Version None)
Quarter: 2009Q1

REPORT INFORMATION
  Report Type: 
  Country: None (occurrence: None)
  Receive Date: 20090206
  Receipt Date: 20090203
  Transmission Date: 20090719
  Serious: Yes (Death, Other)
  Sender: FDA-Public Use
  Company Number: PHHY2008GR05027

PATIENT
  Sex: Female

DRUGS (1)
  1. ZOMETA [Suspect]
     Dosage: UNK, UNK
     Dates: start: 20020101

REACTIONS (8)
  - BONE DISORDER [None]
  - CARDIAC ANEURYSM [None]
  - FISTULA [None]
  - GENERAL PHYSICAL HEALTH DETERIORATION [None]
  - JAW FRACTURE [None]
  - MASTICATION DISORDER [None]
  - OSTEONECROSIS [None]
  - WEIGHT GAIN POOR [None]
